FAERS Safety Report 11895194 (Version 9)
Quarter: 2016Q4

REPORT INFORMATION
  Report Type: Spontaneous
  Country: US (occurrence: US)
  Receive Date: 20160107
  Receipt Date: 20161111
  Transmission Date: 20170206
  Serious: No
  Sender: FDA-Public Use
  Company Number: US-PFIZER INC-2015404571

PATIENT
  Age: 52 Year
  Sex: Female
  Weight: 99.2 kg

DRUGS (55)
  1. LYRICA [Suspect]
     Active Substance: PREGABALIN
     Dosage: 100 MG, 3X/DAY
     Route: 048
  2. ZYRTEC [Concomitant]
     Active Substance: CETIRIZINE HYDROCHLORIDE
     Indication: HYPERSENSITIVITY
     Dosage: 10 MG, AS NEEDED
     Route: 048
  3. ST. JOHN^S WORT [Concomitant]
     Active Substance: ST. JOHN^S WORT
     Dosage: UNK
  4. DIFLUCAN [Concomitant]
     Active Substance: FLUCONAZOLE
     Dosage: 150 MG, UNK
  5. SUDAFED 12 HOUR [Concomitant]
     Active Substance: PSEUDOEPHEDRINE HYDROCHLORIDE
     Dosage: 120 MG, AS NEEDED (120 MG XR12H-TAB )
  6. METROGEL [Concomitant]
     Active Substance: METRONIDAZOLE
     Dosage: 1 %, 2X/DAY (CENTRAL FACE TWICE A DAY)
     Route: 061
  7. PROVENTIL HFA [Concomitant]
     Active Substance: ALBUTEROL SULFATE
     Indication: WHEEZING
  8. ZANTAC [Concomitant]
     Active Substance: RANITIDINE HYDROCHLORIDE
     Dosage: 150 MG, AS NEEDED
  9. LYRICA [Suspect]
     Active Substance: PREGABALIN
     Indication: FIBROMYALGIA
     Dosage: 50 MG, 3X/DAY
  10. ACYCLOVIR. [Concomitant]
     Active Substance: ACYCLOVIR
     Dosage: 400 MG, 2X/DAY
     Route: 048
  11. HYDROCHLOROTHIAZIDE W/LISINOPRIL [Concomitant]
     Active Substance: HYDROCHLOROTHIAZIDE\LISINOPRIL
     Indication: HYPERTENSION
     Dosage: HYDROCHLOROTHIAZIDE: 25MG- LISINOPRIL: 20MG
  12. HYDROCHLOROTHIAZIDE W/LISINOPRIL [Concomitant]
     Active Substance: HYDROCHLOROTHIAZIDE\LISINOPRIL
     Dosage: 1 DF, DAILY [HYDROCHLOROTHIAZIDE: 12.5MG]/[LISINOPRIL: 20MG], DAILY
     Route: 048
  13. TIZANIDINE. [Concomitant]
     Active Substance: TIZANIDINE
     Dosage: 4 MG, UNK
  14. LEVOCETIRIZINE [Concomitant]
     Active Substance: LEVOCETIRIZINE
     Dosage: 5 MG, UNK
  15. MELATONIN [Concomitant]
     Active Substance: MELATONIN
     Dosage: 5 MG, UNK
  16. TYLENOL EXTRA STRENGTH [Concomitant]
     Active Substance: ACETAMINOPHEN
     Dosage: 1000 MG, 4X/DAY (AS NEEDED)
  17. PROVENTIL HFA [Concomitant]
     Active Substance: ALBUTEROL SULFATE
     Indication: COUGH
     Dosage: 108 UNK, AS NEEDED (108 (90 BASE) MCG/ACT AERS () 1-2 PUFFS EVERY 4-6 HOURS)
  18. NAT-RUL PSYLLIUM SEED HUSK [Concomitant]
     Dosage: UNK, TAKE 4 DAILY
  19. TYLENOL [Suspect]
     Active Substance: ACETAMINOPHEN
     Dosage: UNK
  20. LEVOTHYROXINE. [Concomitant]
     Active Substance: LEVOTHYROXINE
     Dosage: 75 UG, UNK
  21. PROAIR HFA [Concomitant]
     Active Substance: ALBUTEROL SULFATE
     Dosage: 90 MCG/INH AEROSOL
  22. OMEPRAZOLE. [Concomitant]
     Active Substance: OMEPRAZOLE
     Dosage: 40 MG, UNK
  23. NYSTATIN. [Concomitant]
     Active Substance: NYSTATIN
     Dosage: UNK (100000 UNITS/ML)
  24. MELATONIN [Concomitant]
     Active Substance: MELATONIN
     Dosage: 10 MG, DAILY (TAKE 1 AT BEDTIME) (CR-TABS)
  25. ASPIRIN (E.C.) [Concomitant]
     Active Substance: ASPIRIN
     Dosage: 81 MG, DAILY (81 MG TBEC (ASPIRIN) 1 BY MOUTH AT BEDTIME)
     Route: 048
  26. LYRICA [Suspect]
     Active Substance: PREGABALIN
     Dosage: 75 MG, 3X/DAY
     Route: 048
  27. LYRICA [Suspect]
     Active Substance: PREGABALIN
     Dosage: 50 MG, UNK (2 CAPS MIDNIGHT, 1 CAP 6 AM, 2 CAPS NOON, 2 CAP 6 PM)
     Route: 048
  28. FLUCONAZOLE. [Concomitant]
     Active Substance: FLUCONAZOLE
     Dosage: 150 MG, UNK
  29. TEMAZEPAM. [Concomitant]
     Active Substance: TEMAZEPAM
     Dosage: 30 MG, UNK
  30. ESTROVEN EXTRA STRENGTH [Concomitant]
     Dosage: UNK
  31. SOMAC [Concomitant]
     Active Substance: PANTOPRAZOLE SODIUM
     Dosage: UNK
  32. NEXIUM [Concomitant]
     Active Substance: ESOMEPRAZOLE MAGNESIUM
     Dosage: 40 MG, DAILY (CPDR), (1 BY MOUTH EVERY DAY)
     Route: 048
  33. EFFEXOR XR [Concomitant]
     Active Substance: VENLAFAXINE HYDROCHLORIDE
     Dosage: 37.5 MG, UNK
  34. PROVENTIL HFA [Concomitant]
     Active Substance: ALBUTEROL SULFATE
     Indication: DYSPNOEA
  35. CYMBALTA [Concomitant]
     Active Substance: DULOXETINE HYDROCHLORIDE
     Dosage: 30 MG, DAILY (CPEP)
     Route: 048
  36. TRAMADOL. [Concomitant]
     Active Substance: TRAMADOL
     Dosage: 50 MG, UNK
  37. TRAMADOL. [Concomitant]
     Active Substance: TRAMADOL
     Dosage: 100 MG, 4X/DAY
  38. TRAMADOL. [Concomitant]
     Active Substance: TRAMADOL
     Dosage: 50 MG, AS NEEDED
  39. NASONEX [Concomitant]
     Active Substance: MOMETASONE FUROATE
     Dosage: UNK UNK, DAILY (5O MCG/ACT SUSP (MOMETASONE FUROATE) 2 SPRAYS IN EACH NOSTRIL EVERY DAY)
     Route: 045
  40. CLARITIN [Concomitant]
     Active Substance: LORATADINE
     Indication: HYPERSENSITIVITY
     Dosage: 10 MG, AS NEEDED
  41. FLUTICASONE [Concomitant]
     Active Substance: FLUTICASONE\FLUTICASONE PROPIONATE
     Dosage: 50 MCG/INH
  42. ALBUTEROL. [Concomitant]
     Active Substance: ALBUTEROL
     Dosage: 90 MCG/INH AEROSOL
  43. TYLENOL EXTRA STRENGTH [Concomitant]
     Active Substance: ACETAMINOPHEN
     Dosage: 500 MG, UNK
  44. TIZANIDINE HCL [Concomitant]
     Active Substance: TIZANIDINE HYDROCHLORIDE
     Dosage: 4 MG, DAILY (TAKE 4 DAILY)
  45. EPIPEN JR [Concomitant]
     Active Substance: EPINEPHRINE
     Indication: HYPERSENSITIVITY
     Dosage: UNK (0.15 MG/0.3 ML DEVI )
  46. LISINOPRIL. [Concomitant]
     Active Substance: LISINOPRIL
     Dosage: 40 MG, UNK
  47. TIZANIDINE. [Concomitant]
     Active Substance: TIZANIDINE
     Dosage: 16 MG, 4X/DAY
  48. RANITIDINE. [Concomitant]
     Active Substance: RANITIDINE
     Dosage: 150 MG, DAILY
     Route: 048
  49. ALBUTEROL. [Concomitant]
     Active Substance: ALBUTEROL
     Dosage: 1.25MG/3ML NEBULIZER
  50. PROBIOTIC [Concomitant]
     Active Substance: PROBIOTICS NOS
     Dosage: UNK
  51. LEVSIN [Concomitant]
     Active Substance: HYOSCYAMINE SULFATE
     Dosage: 0.125 MG, UNK
  52. BENADRYL [Concomitant]
     Active Substance: DIPHENHYDRAMINE HYDROCHLORIDE
     Dosage: 25 MG, UNK
  53. HYOSCYAMINE SULFATE. [Concomitant]
     Active Substance: HYOSCYAMINE SULFATE
     Dosage: 0.125 MG, AS NEEDED (1-2 TABLET BY MOUTH 4 TIMES DAILY AS NEEDED)
     Route: 048
  54. SYNTHROID [Concomitant]
     Active Substance: LEVOTHYROXINE SODIUM
     Dosage: 100 UG, DAILY
     Route: 048
  55. PRILOSEC [Concomitant]
     Active Substance: OMEPRAZOLE MAGNESIUM
     Dosage: UNK

REACTIONS (49)
  - Vision blurred [Unknown]
  - Muscle spasms [Unknown]
  - Abdominal pain [Unknown]
  - Constipation [Unknown]
  - Dry skin [Unknown]
  - Pruritus [Unknown]
  - Depression [Unknown]
  - Insomnia [Unknown]
  - Fatigue [Unknown]
  - Dizziness [Unknown]
  - Hypoaesthesia [Unknown]
  - Condition aggravated [Unknown]
  - Chest pain [Unknown]
  - Wheezing [Unknown]
  - Anal incontinence [Unknown]
  - Pelvic pain [Unknown]
  - Joint stiffness [Unknown]
  - Balance disorder [Unknown]
  - Condition aggravated [Recovering/Resolving]
  - Dyspnoea [Unknown]
  - Urticaria [Unknown]
  - Skin ulcer [Unknown]
  - Amnesia [Unknown]
  - Disturbance in attention [Unknown]
  - Coordination abnormal [Unknown]
  - Malaise [Unknown]
  - Back pain [Unknown]
  - Visual impairment [Unknown]
  - Photophobia [Unknown]
  - Sinus congestion [Unknown]
  - Micturition urgency [Unknown]
  - Muscular weakness [Unknown]
  - Asthenia [Unknown]
  - Headache [Unknown]
  - Paraesthesia [Unknown]
  - Temperature intolerance [Unknown]
  - Weight increased [Unknown]
  - Joint swelling [Unknown]
  - Myalgia [Unknown]
  - Irritability [Unknown]
  - Impaired healing [Unknown]
  - Rash [Unknown]
  - Fibromyalgia [Recovering/Resolving]
  - Pain [Not Recovered/Not Resolved]
  - Dyspareunia [Unknown]
  - Arthralgia [Unknown]
  - Neck pain [Unknown]
  - Central obesity [Unknown]
  - Intentional product misuse [Unknown]
